FAERS Safety Report 5337590-0 (Version None)
Quarter: 2007Q2

REPORT INFORMATION
  Report Type: 
  Country: None (occurrence: None)
  Receive Date: 20070524
  Receipt Date: 20070510
  Transmission Date: 20071010
  Serious: Yes (Hospitalization)
  Sender: FDA-Public Use
  Company Number: 2007S1000220

PATIENT
  Age: 57 Year
  Sex: Male
  Weight: 206 kg

DRUGS (11)
  1. CUBICIN [Suspect]
     Indication: CELLULITIS
     Dosage: 5.8 MG/KG; Q24H; IV
     Route: 042
     Dates: start: 20070426, end: 20070503
  2. CUBICIN [Suspect]
     Indication: STREPTOCOCCAL BACTERAEMIA
     Dosage: 5.8 MG/KG; Q24H; IV
     Route: 042
     Dates: start: 20070426, end: 20070503
  3. POTASSIUM CHLORIDE [Concomitant]
  4. ACETYLSALICYLIC ACID SRT [Concomitant]
  5. NEXIUM [Concomitant]
  6. TORSEMIDE [Concomitant]
  7. LISINOPRIL [Concomitant]
  8. FOLIC ACID [Concomitant]
  9. PLAVIX [Concomitant]
  10. CEPHALEXIN [Concomitant]
  11. AMARYL [Concomitant]

REACTIONS (7)
  - ASTHENIA [None]
  - BACTERAEMIA [None]
  - BLOOD CREATINE PHOSPHOKINASE INCREASED [None]
  - DISEASE RECURRENCE [None]
  - ESCHERICHIA URINARY TRACT INFECTION [None]
  - NEUTROPENIA [None]
  - PSEUDOMONAS INFECTION [None]
